FAERS Safety Report 15901417 (Version 2)
Quarter: 2019Q1

REPORT INFORMATION
  Report Type: Report from Study
  Country: CA (occurrence: CA)
  Receive Date: 20190201
  Receipt Date: 20190227
  Transmission Date: 20190417
  Serious: Yes (Hospitalization)
  Sender: FDA-Public Use
  Company Number: CA-PFIZER INC-2019002299

PATIENT
  Age: 69 Year
  Sex: Male
  Weight: 82 kg

DRUGS (2)
  1. XELJANZ [Suspect]
     Active Substance: TOFACITINIB CITRATE
     Indication: RHEUMATOID ARTHRITIS
     Dosage: 5 MG, TWICE DAILY
     Dates: start: 20181004, end: 20181204
  2. ASPIRIN 81 [Concomitant]
     Active Substance: ASPIRIN
     Indication: PROPHYLAXIS
     Dosage: 81 MG, ONCE DAILY
     Route: 048
     Dates: start: 20160502

REACTIONS (3)
  - Respiratory failure [Recovering/Resolving]
  - Pneumonia [Recovering/Resolving]
  - Hypoxia [Recovered/Resolved]

NARRATIVE: CASE EVENT DATE: 20181214
